FAERS Safety Report 11620001 (Version 1)
Quarter: 2015Q4

REPORT INFORMATION
  Report Type: Spontaneous
  Country: FR (occurrence: FR)
  Receive Date: 20151012
  Receipt Date: 20151012
  Transmission Date: 20160304
  Serious: Yes (Other)
  Sender: FDA-Public Use
  Company Number: PHHY2015FR120385

PATIENT
  Age: 55 Year
  Sex: Female

DRUGS (3)
  1. AXELER [Concomitant]
     Active Substance: AMLODIPINE BESYLATE\OLMESARTAN MEDOXOMIL
     Indication: PRODUCT USED FOR UNKNOWN INDICATION
     Route: 065
  2. FORADIL [Suspect]
     Active Substance: FORMOTEROL FUMARATE
     Indication: ASTHMA
     Dosage: 2 INHALATIONS IN THE MORNING DAILY
     Route: 055
     Dates: end: 20151006
  3. VENTOLINE [Interacting]
     Active Substance: ALBUTEROL
     Indication: ASTHMA
     Dosage: UNK
     Route: 065
     Dates: end: 20151002

REACTIONS (7)
  - Dyspnoea [Not Recovered/Not Resolved]
  - Asthmatic crisis [Recovered/Resolved]
  - Drug interaction [Unknown]
  - Hypersensitivity [Unknown]
  - Productive cough [Not Recovered/Not Resolved]
  - Tachycardia [Not Recovered/Not Resolved]
  - Fatigue [Not Recovered/Not Resolved]

NARRATIVE: CASE EVENT DATE: 20151006
